FAERS Safety Report 7473695-6 (Version None)
Quarter: 2011Q1

REPORT INFORMATION
  Report Type: 
  Country: None (occurrence: None)
  Receive Date: 20110302
  Receipt Date: 20100706
  Transmission Date: 20110831
  Serious: Yes (Death)
  Sender: FDA-Public Use
  Company Number: 163-21880-10070434

PATIENT
  Age: 70 Year
  Sex: Male

DRUGS (3)
  1. REVLIMID [Suspect]
     Indication: MYELODYSPLASTIC SYNDROME
     Dosage: 10 MG, DAYS 1-28, PO; 10 MG, DAYS 1-28, PO; 5 MG, 1 IN 1 D, PO
     Route: 048
     Dates: start: 20100101, end: 20100501
  2. REVLIMID [Suspect]
     Indication: MYELODYSPLASTIC SYNDROME
     Dosage: 10 MG, DAYS 1-28, PO; 10 MG, DAYS 1-28, PO; 5 MG, 1 IN 1 D, PO
     Route: 048
     Dates: start: 20090722
  3. REVLIMID [Suspect]
     Indication: MYELODYSPLASTIC SYNDROME
     Dosage: 10 MG, DAYS 1-28, PO; 10 MG, DAYS 1-28, PO; 5 MG, 1 IN 1 D, PO
     Route: 048
     Dates: start: 20091001

REACTIONS (1)
  - DEATH [None]
